FAERS Safety Report 19706210 (Version 1)
Quarter: 2021Q3

REPORT INFORMATION
  Report Type: Report from Study
  Country: FR (occurrence: FR)
  Receive Date: 20210817
  Receipt Date: 20210817
  Transmission Date: 20211014
  Serious: Yes (Hospitalization)
  Sender: FDA-Public Use
  Company Number: FR-ROCHE-2890320

PATIENT
  Age: 69 Year
  Sex: Female
  Weight: 57.4 kg

DRUGS (2)
  1. ATEZOLIZUMAB. [Suspect]
     Active Substance: ATEZOLIZUMAB
     Indication: SOFT TISSUE SARCOMA
     Dosage: ON 27/JUL/2021, SHE RECEIVED MOST DOSE OF ATEZOLIZUMAB PRIOR TO THE EVENT.
     Route: 042
     Dates: start: 20210727
  2. COBIMETINIB. [Suspect]
     Active Substance: COBIMETINIB
     Indication: SOFT TISSUE SARCOMA
     Dosage: FREQUENCY: 21 DAYS ON / 7 DAYS OFF?ON 09/AUG/2021, SHE RECEIVED MOST RECENT DOSE OF COBIMETINIB PRIO
     Route: 048
     Dates: start: 20210727

REACTIONS (1)
  - Troponin increased [Not Recovered/Not Resolved]

NARRATIVE: CASE EVENT DATE: 20210803
